FAERS Safety Report 11836527 (Version 2)
Quarter: 2016Q1

REPORT INFORMATION
  Report Type: Spontaneous
  Country: US (occurrence: US)
  Receive Date: 20151215
  Receipt Date: 20160315
  Transmission Date: 20160525
  Serious: Yes (Hospitalization)
  Sender: FDA-Public Use
  Company Number: US-RAPTOR PHARMACEUTICALS, INC.-RAP-001158-2015

PATIENT
  Sex: Male

DRUGS (1)
  1. PROCYSBI DELAYED-RELEASE [Suspect]
     Active Substance: CYSTEAMINE BITARTRATE
     Indication: PRODUCT USED FOR UNKNOWN INDICATION
     Dosage: 300 MG, BID

REACTIONS (3)
  - Hospitalisation [Unknown]
  - Dysphagia [Unknown]
  - Device occlusion [Unknown]

NARRATIVE: CASE EVENT DATE: 20151203
